FAERS Safety Report 17790286 (Version 1)
Quarter: 2020Q2

REPORT INFORMATION
  Report Type: Spontaneous
  Country: US (occurrence: US)
  Receive Date: 20200515
  Receipt Date: 20200515
  Transmission Date: 20200714
  Serious: No
  Sender: FDA-Public Use
  Company Number: US-CELLTRION INC.-2020US019805

PATIENT

DRUGS (1)
  1. TRUXIMA [Suspect]
     Active Substance: RITUXIMAB-ABBS
     Indication: GRAFT VERSUS HOST DISEASE
     Dosage: UNK

REACTIONS (1)
  - Product prescribing issue [Unknown]
